FAERS Safety Report 9917042 (Version 2)
Quarter: 2014Q2

REPORT INFORMATION
  Report Type: Report from Study
  Country: PH (occurrence: PH)
  Receive Date: 20140221
  Receipt Date: 20140430
  Transmission Date: 20141212
  Serious: Yes (Life-Threatening, Hospitalization)
  Sender: FDA-Public Use
  Company Number: PH-GLAXOSMITHKLINE-B0971480A

PATIENT
  Age: 67 Year
  Sex: Male
  Weight: 63.1 kg

DRUGS (7)
  1. BLINDED TRIAL MEDICATION [Suspect]
     Indication: CHRONIC OBSTRUCTIVE PULMONARY DISEASE
     Dates: start: 20131230
  2. ADVAIR [Concomitant]
     Indication: CHRONIC OBSTRUCTIVE PULMONARY DISEASE
     Dates: start: 20131218, end: 20131231
  3. SALBUTAMOL [Concomitant]
     Indication: CHRONIC OBSTRUCTIVE PULMONARY DISEASE
  4. LOSARTAN [Concomitant]
     Indication: HYPERTENSION
     Dosage: 50MG PER DAY
     Route: 048
     Dates: start: 2003
  5. METFORMIN [Concomitant]
     Indication: DIABETES MELLITUS
     Dosage: 500MG THREE TIMES PER DAY
     Route: 048
     Dates: start: 2003
  6. PYRIDOSTIGMINE [Concomitant]
     Indication: MYASTHENIA GRAVIS
     Dosage: 60MG THREE TIMES PER DAY
     Route: 048
     Dates: start: 2005
  7. PYRIDOSTIGMINE [Concomitant]
     Dosage: 60MG PER DAY
     Route: 048
     Dates: start: 2005

REACTIONS (5)
  - Pulmonary congestion [Recovered/Resolved]
  - Pneumonia [Recovered/Resolved]
  - Acute respiratory failure [Recovered/Resolved with Sequelae]
  - Arrhythmia [Recovered/Resolved]
  - Pneumonia [Recovered/Resolved]
